FAERS Safety Report 7466282-7 (Version None)
Quarter: 2011Q2

REPORT INFORMATION
  Report Type: 
  Country: None (occurrence: None)
  Receive Date: 20110509
  Receipt Date: 20100714
  Transmission Date: 20111010
  Serious: No
  Sender: FDA-Public Use
  Company Number: US-ALEXION-A201000831

PATIENT
  Sex: Female

DRUGS (2)
  1. ANTIDEPRESSANTS [Suspect]
  2. SOLIRIS [Suspect]
     Indication: PAROXYSMAL NOCTURNAL HAEMOGLOBINURIA
     Dosage: 900 MG, Q2W
     Route: 042
     Dates: start: 20100512

REACTIONS (9)
  - RHINORRHOEA [None]
  - FATIGUE [None]
  - DEPRESSION [None]
  - CONSTIPATION [None]
  - ANXIETY [None]
  - IRRITABILITY [None]
  - THROAT IRRITATION [None]
  - BLOOD GLUCOSE INCREASED [None]
  - HEADACHE [None]
